FAERS Safety Report 14185322 (Version 4)
Quarter: 2018Q2

REPORT INFORMATION
  Report Type: Spontaneous
  Country: BR (occurrence: BR)
  Receive Date: 20171113
  Receipt Date: 20180504
  Transmission Date: 20180711
  Serious: Yes (Hospitalization, Other)
  Sender: FDA-Public Use
  Company Number: BR-AMGEN-BRASP2017170499

PATIENT
  Age: 51 Year
  Sex: Female

DRUGS (1)
  1. ENBREL [Suspect]
     Active Substance: ETANERCEPT
     Indication: PRODUCT USED FOR UNKNOWN INDICATION
     Dosage: UNK
     Route: 065
     Dates: start: 2012

REACTIONS (6)
  - Localised infection [Unknown]
  - Peripheral swelling [Not Recovered/Not Resolved]
  - Osteomyelitis [Unknown]
  - Inflammation [Unknown]
  - Rheumatoid arthritis [Unknown]
  - Foot deformity [Unknown]
